FAERS Safety Report 7808616-7 (Version None)
Quarter: 2011Q4

REPORT INFORMATION
  Report Type: 
  Country: None (occurrence: None)
  Receive Date: 20111012
  Receipt Date: 20111007
  Transmission Date: 20120403
  Serious: No
  Sender: FDA-Public Use
  Company Number: US-PFIZER INC-2011241074

PATIENT
  Sex: Male

DRUGS (7)
  1. ASPIRIN [Concomitant]
     Dosage: UNK
  2. SPIRIVA [Concomitant]
  3. SYMBICORT [Concomitant]
     Dosage: UNK
  4. LYRICA [Suspect]
     Dosage: UNK
  5. AVODART [Concomitant]
  6. MULTIVITAMIN [Concomitant]
  7. LIPITOR [Concomitant]

REACTIONS (1)
  - FEELING ABNORMAL [None]
